FAERS Safety Report 9928222 (Version 1)
Quarter: 2014Q1

REPORT INFORMATION
  Report Type: Spontaneous
  Country: US (occurrence: None)
  Receive Date: 20140224
  Receipt Date: 20140224
  Transmission Date: 20141002
  Serious: No
  Sender: FDA-Public Use
  Company Number: NL01PV14.35155

PATIENT
  Age: 39 Year
  Sex: Female

DRUGS (7)
  1. UNKNOWN (ZOLPIDEM) TABLET [Suspect]
     Dosage: UNK, ORAL
     Route: 048
  2. CARISOPRODOL (CARISOPRODOL) [Suspect]
     Dosage: UNK , ORAL
     Route: 048
  3. PROMETHAZINE (PROMETHAZINE) [Suspect]
     Dosage: UNK , ORAL
     Route: 048
  4. BUPROPION (BUPROPION) [Suspect]
     Dosage: UNK, ORAL
     Route: 048
  5. ACETAMINOPHEN/DIPENHYDRAMINE [Suspect]
     Dosage: UNK , ORAL
     Route: 048
  6. ACETAMINOPHEN/BUTALBITAL [Suspect]
     Dosage: UNK , ORAL
     Route: 048
  7. CAFFEINE (CAFFEINE) [Suspect]
     Dosage: UNK , ORAL
     Route: 048

REACTIONS (2)
  - Exposure via ingestion [None]
  - Completed suicide [None]
